FAERS Safety Report 9757860 (Version 1)
Quarter: 2013Q4

REPORT INFORMATION
  Report Type: Spontaneous
  Country: US (occurrence: US)
  Receive Date: 20131216
  Receipt Date: 20131216
  Transmission Date: 20140711
  Serious: No
  Sender: FDA-Public Use
  Company Number: US-B.I. PHARMACEUTICALS,INC./RIDGEFIELD-2013-BI-39356BP

PATIENT
  Age: 71 Year
  Sex: Female
  Weight: 84 kg

DRUGS (1)
  1. COMBIVENT [Suspect]
     Indication: PULMONARY SARCOIDOSIS
     Dosage: STRENGTH: 20 MCG / 100 MCG;
     Route: 055
     Dates: start: 201310

REACTIONS (3)
  - Pollakiuria [Not Recovered/Not Resolved]
  - Gingival pain [Recovered/Resolved]
  - Off label use [Not Recovered/Not Resolved]
